FAERS Safety Report 4477064-2 (Version None)
Quarter: 2004Q4

REPORT INFORMATION
  Report Type: 
  Country: None (occurrence: None)
  Receive Date: 20041013
  Receipt Date: 20040924
  Transmission Date: 20050328
  Serious: Yes (Other)
  Sender: FDA-Public Use
  Company Number: FR_040904880

PATIENT
  Age: 73 Year
  Sex: Male

DRUGS (2)
  1. CIALIS [Suspect]
     Indication: ERECTILE DYSFUNCTION
     Dosage: 0.5 DSG FORM/3 OTHER
     Route: 050
     Dates: start: 20040824
  2. ANTIHYPERTENSIVE [Concomitant]

REACTIONS (5)
  - BACK PAIN [None]
  - DIFFICULTY IN WALKING [None]
  - DRUG INEFFECTIVE [None]
  - PARAESTHESIA [None]
  - SENSORY LOSS [None]
